FAERS Safety Report 4521079-2 (Version None)
Quarter: 2004Q4

REPORT INFORMATION
  Report Type: 
  Country: None (occurrence: None)
  Receive Date: 20041206
  Receipt Date: 20041119
  Transmission Date: 20050328
  Serious: No
  Sender: FDA-Public Use
  Company Number: 2004SE06597

PATIENT
  Age: 3 Year
  Sex: Male

DRUGS (1)
  1. PULMICORT [Suspect]
     Dosage: 100 MCG

REACTIONS (5)
  - ASTHMA [None]
  - DRUG INEFFECTIVE [None]
  - MEDICATION ERROR [None]
  - NASOPHARYNGITIS [None]
  - PHARMACEUTICAL PRODUCT COMPLAINT [None]
